FAERS Safety Report 6076170-9 (Version None)
Quarter: 2009Q1

REPORT INFORMATION
  Report Type: 
  Country: None (occurrence: None)
  Receive Date: 20090212
  Receipt Date: 20090209
  Transmission Date: 20090719
  Serious: Yes (Hospitalization)
  Sender: FDA-Public Use
  Company Number: AU-B.I. PHARMACEUTICALS,INC./RIDGEFIELD-2009-DE-01377GD

PATIENT
  Age: 57 Year
  Sex: Male

DRUGS (8)
  1. TELMISARTAN [Suspect]
     Indication: MALIGNANT HYPERTENSION
     Dosage: TITRATED UP TO MAXIMUM DOSE
  2. TELMISARTAN [Suspect]
     Indication: HYPERTENSION
  3. AMLODIPINE [Suspect]
     Indication: MALIGNANT HYPERTENSION
     Dosage: TITRATED UP TO MAXIMUM DOSE
  4. AMLODIPINE [Suspect]
     Indication: HYPERTENSION
  5. INDAPAMIDE [Suspect]
     Indication: MALIGNANT HYPERTENSION
     Dosage: TITRATED UP TO MAXIMUM DOSE
  6. INDAPAMIDE [Suspect]
     Indication: HYPERTENSION
  7. ATENOLOL [Suspect]
     Indication: MALIGNANT HYPERTENSION
     Dosage: TITRATED UP TO MAXIMUM DOSE
  8. ATENOLOL [Suspect]
     Indication: HYPERTENSION

REACTIONS (1)
  - DRUG INEFFECTIVE [None]
